FAERS Safety Report 6279238-7 (Version None)
Quarter: 2009Q3

REPORT INFORMATION
  Report Type: 
  Country: None (occurrence: None)
  Receive Date: 20090720
  Receipt Date: 20090720
  Transmission Date: 20100115
  Serious: No
  Sender: FDA-Public Use
  Company Number: None

PATIENT
  Age: 63 Year
  Sex: Female
  Weight: 62.5964 kg

DRUGS (1)
  1. TERBINAFINE HYDROCHLORIDE [Suspect]
     Indication: ONYCHOMYCOSIS
     Dosage: 1 TABLET DAILY
     Dates: start: 20090522, end: 20090701

REACTIONS (4)
  - ABDOMINAL DISCOMFORT [None]
  - AGEUSIA [None]
  - DYSPEPSIA [None]
  - GLOSSODYNIA [None]
